FAERS Safety Report 4987747-3 (Version None)
Quarter: 2006Q2

REPORT INFORMATION
  Report Type: 
  Country: None (occurrence: None)
  Receive Date: 20060428
  Receipt Date: 20060428
  Transmission Date: 20061013
  Serious: Yes (Life-Threatening, Hospitalization)
  Sender: FDA-Public Use
  Company Number: None

PATIENT
  Sex: Male

DRUGS (4)
  1. SIMVASTATIN [Suspect]
     Indication: HYPERCHOLESTEROLAEMIA
     Dosage: 10 MG DAILY PO
     Route: 048
     Dates: start: 20020101, end: 20050501
  2. GEMFIBROZIL [Suspect]
     Indication: HYPERCHOLESTEROLAEMIA
     Dosage: 600 MG TWICE DAILY PO
     Route: 048
     Dates: start: 20050401, end: 20050501
  3. ERYTHROMYCIN [Concomitant]
  4. CYCLOSPORINE [Concomitant]

REACTIONS (3)
  - BLOOD CHOLESTEROL ABNORMAL [None]
  - RHABDOMYOLYSIS [None]
  - UPPER RESPIRATORY TRACT INFECTION [None]
